FAERS Safety Report 9114565 (Version 2)
Quarter: 2013Q1

REPORT INFORMATION
  Report Type: Spontaneous
  Country: CA (occurrence: None)
  Receive Date: 20130129
  Receipt Date: 20130221
  Transmission Date: 20140127
  Serious: Yes (Other)
  Sender: FDA-Public Use
  Company Number: TPA2012A09816

PATIENT
  Age: 38 Year
  Sex: Female

DRUGS (4)
  1. PREVACID (LANSOPRAZOLE) [Suspect]
     Indication: GASTROOESOPHAGEAL REFLUX DISEASE
     Dosage: 60MG (30MG, 2 IN 1 D)
     Route: 048
     Dates: start: 20050115, end: 20111125
  2. PREVACID (LANSOPRAZOLE) [Suspect]
     Indication: ULCER
     Dosage: 60MG (30MG, 2 IN 1 D)
     Route: 048
     Dates: start: 20050115, end: 20111125
  3. CODEINE (CODEINE) [Concomitant]
  4. ACETAMINOPHEN (PARACETAMOL) [Concomitant]

REACTIONS (25)
  - Bone lesion [None]
  - Scar [None]
  - Fracture malunion [None]
  - Spinal pain [None]
  - Osteochondrosis [None]
  - Contusion [None]
  - Wrist fracture [None]
  - Stress fracture [None]
  - Foot fracture [None]
  - Fracture [None]
  - Arthralgia [None]
  - Arthritis [None]
  - Oedema peripheral [None]
  - Discomfort [None]
  - Local swelling [None]
  - Local swelling [None]
  - Joint swelling [None]
  - Joint swelling [None]
  - Arthralgia [None]
  - Arthralgia [None]
  - Swelling [None]
  - Pain [None]
  - Pain in extremity [None]
  - Bone pain [None]
  - Contusion [None]
